FAERS Safety Report 19894150 (Version 1)
Quarter: 2021Q3

REPORT INFORMATION
  Report Type: Spontaneous
  Country: US (occurrence: US)
  Receive Date: 20210928
  Receipt Date: 20210928
  Transmission Date: 20211014
  Serious: Yes (Hospitalization)
  Sender: FDA-Public Use
  Company Number: None

PATIENT
  Age: 66 Year
  Sex: Male
  Weight: 66.2 kg

DRUGS (2)
  1. ASPIRIN 81 MG DAILY [Concomitant]
     Active Substance: ASPIRIN
  2. DABIGATRAN [Suspect]
     Active Substance: DABIGATRAN
     Indication: DEEP VEIN THROMBOSIS
     Route: 048
     Dates: start: 20200724, end: 20210722

REACTIONS (6)
  - Haematemesis [None]
  - Oesophageal ulcer [None]
  - Duodenitis [None]
  - Fall [None]
  - Hiatus hernia [None]
  - Syncope [None]

NARRATIVE: CASE EVENT DATE: 20210722
